FAERS Safety Report 16310362 (Version 1)
Quarter: 2019Q2

REPORT INFORMATION
  Report Type: Spontaneous
  Country: JP (occurrence: JP)
  Receive Date: 20190514
  Receipt Date: 20190514
  Transmission Date: 20190711
  Serious: Yes (Hospitalization, Other)
  Sender: FDA-Public Use
  Company Number: JP-PFIZER INC-2019196906

PATIENT
  Age: 60 Year
  Sex: Male

DRUGS (1)
  1. EPIRUBICIN HCL [Suspect]
     Active Substance: EPIRUBICIN HYDROCHLORIDE
     Indication: HEPATIC CANCER
     Dosage: 50 MG, UNK
     Dates: start: 2014

REACTIONS (2)
  - Liver abscess [Recovered/Resolved]
  - Septic shock [Recovered/Resolved]
